FAERS Safety Report 8591131-3 (Version None)
Quarter: 2012Q3

REPORT INFORMATION
  Report Type: 
  Country: None (occurrence: None)
  Receive Date: 20120813
  Receipt Date: 20120809
  Transmission Date: 20120928
  Serious: Yes (Hospitalization)
  Sender: FDA-Public Use
  Company Number: BR-ROCHE-1100221

PATIENT
  Sex: Female
  Weight: 91 kg

DRUGS (11)
  1. CLONIDINE HYDROCHLORIDE [Concomitant]
  2. CALCIUM [Concomitant]
  3. METFORMIN HYDROCHLORIDE [Concomitant]
  4. METHOTREXATE [Concomitant]
  5. FOLIC ACID [Concomitant]
  6. SIMVASTATIN [Concomitant]
  7. PRESSAT [Concomitant]
  8. MABTHERA [Suspect]
     Indication: RHEUMATOID ARTHRITIS
     Route: 042
     Dates: start: 20070401, end: 20120328
  9. ATACAND [Concomitant]
  10. LIPLESS [Concomitant]
  11. PREDNISONE TAB [Concomitant]

REACTIONS (5)
  - ARTHRALGIA [None]
  - PAIN [None]
  - GALLBLADDER INJURY [None]
  - DRUG INEFFECTIVE [None]
  - CARDIAC DISORDER [None]
